FAERS Safety Report 6436107-7 (Version None)
Quarter: 2009Q4

REPORT INFORMATION
  Report Type: 
  Country: None (occurrence: None)
  Receive Date: 20091105
  Receipt Date: 20091028
  Transmission Date: 20100525
  Serious: Yes (Hospitalization, Other)
  Sender: FDA-Public Use
  Company Number: THYM-1001121

PATIENT
  Age: 66 Year
  Sex: Male
  Weight: 94 kg

DRUGS (19)
  1. THYMOGLOBULIN [Suspect]
     Indication: RENAL TRANSPLANT
     Dosage: INTRAVENOUS ; INTRAVENOUS
     Route: 042
     Dates: start: 20090701, end: 20090702
  2. THYMOGLOBULIN [Suspect]
     Indication: RENAL TRANSPLANT
     Dosage: INTRAVENOUS ; INTRAVENOUS
     Route: 042
     Dates: start: 20090712, end: 20090719
  3. VANCOMYCIN [Concomitant]
  4. LEVOFLOXACIN [Concomitant]
  5. PIPERACILLIN SODIUM W (PIPERACILLIN SODIUM, TAZOBACTAM) [Concomitant]
  6. METHYLPREDNISOLONE [Concomitant]
  7. FLUCONAZOLE [Concomitant]
  8. TACROLIMUS [Concomitant]
  9. NYSTATIN [Concomitant]
  10. LANSOPRAZOLE [Concomitant]
  11. BACTRIM [Concomitant]
  12. NORVASC [Concomitant]
  13. CATAPRES [Concomitant]
  14. NEORECORMON (EPOETIN BETA) [Concomitant]
  15. FILGRASTIM (FILGRASTIM) [Concomitant]
  16. INSULIN (INSULIN) [Concomitant]
  17. MYCOPHENOLATE MOFETIL [Concomitant]
  18. GANCICLOVIR [Concomitant]
  19. FRAGMIN [Concomitant]

REACTIONS (7)
  - BLOOD CREATININE INCREASED [None]
  - BLOOD LACTATE DEHYDROGENASE INCREASED [None]
  - CANDIDIASIS [None]
  - CULTURE THROAT POSITIVE [None]
  - LEUKOPENIA [None]
  - SEPSIS [None]
  - THROMBOCYTOPENIA [None]
